FAERS Safety Report 8786181 (Version 1)
Quarter: 2012Q4

REPORT INFORMATION
  Report Type: Report from Study
  Country: US (occurrence: US)
  Receive Date: 20120914
  Receipt Date: 20120914
  Transmission Date: 20130627
  Serious: No
  Sender: FDA-Public Use
  Company Number: US-VERTEX PHARMACEUTICAL INC.-AE-2012-011552

PATIENT
  Age: 52 Year
  Sex: Male
  Weight: 102.27 kg

DRUGS (10)
  1. INCIVEK [Suspect]
     Indication: HEPATITIS C
     Route: 048
     Dates: start: 20110610
  2. PEGASYS [Concomitant]
     Indication: HEPATITIS C
     Dates: start: 20110610
  3. PEGASYS [Concomitant]
     Dates: start: 20110902
  4. COPEGUS [Concomitant]
     Indication: HEPATITIS C
     Dates: start: 20110610
  5. COPEGUS [Concomitant]
     Dates: start: 20110902
  6. COPEGUS [Concomitant]
     Route: 048
     Dates: start: 20110707
  7. AMLODIPINE [Concomitant]
     Indication: HYPERTENSION
     Route: 048
  8. AMLODIPINE [Concomitant]
     Route: 048
  9. LIPITOR [Concomitant]
     Indication: BLOOD CHOLESTEROL INCREASED
     Route: 048
  10. PRAVACHOL [Concomitant]
     Indication: BLOOD CHOLESTEROL INCREASED

REACTIONS (5)
  - Fatigue [Recovered/Resolved]
  - Rash pruritic [Unknown]
  - Anaemia [Unknown]
  - Anorectal discomfort [Unknown]
  - Pruritus [Unknown]
